FAERS Safety Report 15717835 (Version 1)
Quarter: 2018Q4

REPORT INFORMATION
  Report Type: Spontaneous
  Country: US (occurrence: US)
  Receive Date: 20181129
  Receipt Date: 20181129
  Transmission Date: 20190205
  Serious: No
  Sender: FDA-Public Use
  Company Number: None

PATIENT

DRUGS (1)
  1. VORAPAXAR [Suspect]
     Active Substance: VORAPAXAR

REACTIONS (12)
  - Product use issue [None]
  - Muscle haemorrhage [None]
  - Pain [None]
  - Intra-abdominal haemorrhage [None]
  - Dysphagia [None]
  - Muscle spasms [None]
  - Haemoglobin decreased [None]
  - Muscular weakness [None]
  - Ecchymosis [None]
  - Retroperitoneal haemorrhage [None]
  - Impaired self-care [None]
  - Dysstasia [None]
